FAERS Safety Report 17391891 (Version 3)
Quarter: 2020Q1

REPORT INFORMATION
  Report Type: Spontaneous
  Country: CH (occurrence: CH)
  Receive Date: 20200207
  Receipt Date: 20200211
  Transmission Date: 20200409
  Serious: Yes (Other)
  Sender: FDA-Public Use
  Company Number: CH-ALK-ABELLO A/S-2019AA004112

PATIENT
  Age: 10 Year
  Sex: Male
  Weight: 44.91 kg

DRUGS (2)
  1. ALUTARD SQ INSEKTENGIFTE/VENIN D^INSECTE [Suspect]
     Active Substance: ALLERGENIC EXTRACTS
     Route: 058
     Dates: end: 20191203
  2. HONEY BEE VENOM [Suspect]
     Active Substance: APIS MELLIFERA VENOM
     Indication: ALLERGY TO VENOM
     Route: 058
     Dates: start: 20191029

REACTIONS (5)
  - Angioedema [Recovered/Resolved]
  - Inappropriate schedule of product administration [Recovered/Resolved]
  - Off label use [Recovered/Resolved]
  - Anaphylactic reaction [Recovered/Resolved]
  - Urticaria [Recovered/Resolved]

NARRATIVE: CASE EVENT DATE: 20191029
